FAERS Safety Report 6347939-8 (Version None)
Quarter: 2009Q3

REPORT INFORMATION
  Report Type: 
  Country: None (occurrence: None)
  Receive Date: 20090910
  Receipt Date: 20090907
  Transmission Date: 20100115
  Serious: Yes (Death)
  Sender: FDA-Public Use
  Company Number: PHHY2009MX36523

PATIENT
  Sex: Female

DRUGS (1)
  1. TRILEPTAL [Suspect]
     Indication: DIABETIC NEUROPATHY
     Dosage: 300 MG, UNK
     Route: 048
     Dates: start: 20070101

REACTIONS (4)
  - ADENOCARCINOMA [None]
  - HEPATIC NEOPLASM MALIGNANT [None]
  - METASTATIC GASTRIC CANCER [None]
  - SURGERY [None]
